FAERS Safety Report 10037183 (Version 1)
Quarter: 2014Q1

REPORT INFORMATION
  Report Type: Spontaneous
  Country: MX (occurrence: MX)
  Receive Date: 20140326
  Receipt Date: 20140326
  Transmission Date: 20141002
  Serious: Yes (Other)
  Sender: FDA-Public Use
  Company Number: MX-AMGEN-MEXSP2014019878

PATIENT
  Age: 71 Year
  Sex: Female

DRUGS (1)
  1. ARANESP [Suspect]
     Indication: NEPHROGENIC ANAEMIA
     Dosage: 40 MUG, UNK
     Route: 065

REACTIONS (10)
  - Encephalopathy [Unknown]
  - Septic shock [Unknown]
  - Sensory loss [Unknown]
  - Hyperbilirubinaemia [Unknown]
  - Dehydration [Unknown]
  - Hypocalcaemia [Unknown]
  - Delirium [Unknown]
  - Hypotension [Unknown]
  - Leukocytosis [Unknown]
  - Hypertension [Unknown]
